FAERS Safety Report 6018630-2 (Version None)
Quarter: 2008Q4

REPORT INFORMATION
  Report Type: 
  Country: None (occurrence: None)
  Receive Date: 20081223
  Receipt Date: 20081212
  Transmission Date: 20090506
  Serious: Yes (Other)
  Sender: FDA-Public Use
  Company Number: JP-PFIZER INC-2008154033

PATIENT

DRUGS (2)
  1. GABAPEN [Suspect]
     Dosage: UNK
     Route: 048
  2. DRUG, UNSPECIFIED [Concomitant]
     Dosage: UNK

REACTIONS (1)
  - HEPATIC ENZYME INCREASED [None]
